FAERS Safety Report 11162670 (Version 5)
Quarter: 2020Q4

REPORT INFORMATION
  Report Type: Spontaneous
  Country: US (occurrence: US)
  Receive Date: 20150604
  Receipt Date: 20201021
  Transmission Date: 20210113
  Serious: No
  Sender: FDA-Public Use
  Company Number: US-SA-2015SA002537

PATIENT

DRUGS (4)
  1. LANTUS SOLOSTAR [Suspect]
     Active Substance: INSULIN GLARGINE
     Dosage: 25 IU, QD
     Route: 065
  2. LANTUS SOLOSTAR [Suspect]
     Active Substance: INSULIN GLARGINE
     Dosage: 36 IU, QD
     Route: 065
  3. LANTUS SOLOSTAR [Suspect]
     Active Substance: INSULIN GLARGINE
     Dosage: 30 IU, QD
     Route: 065
  4. LANTUS SOLOSTAR [Suspect]
     Active Substance: INSULIN GLARGINE
     Indication: TYPE 2 DIABETES MELLITUS
     Dosage: 18 IU, QD
     Route: 065
     Dates: start: 2010

REACTIONS (5)
  - Product storage error [Unknown]
  - Visual impairment [Unknown]
  - Feeling abnormal [Unknown]
  - Injection site pain [Unknown]
  - Device issue [Unknown]
